FAERS Safety Report 16528895 (Version 1)
Quarter: 2019Q3

REPORT INFORMATION
  Report Type: Report from Study
  Country: None (occurrence: US)
  Receive Date: 20190703
  Receipt Date: 20190703
  Transmission Date: 20191004
  Serious: No
  Sender: FDA-Public Use
  Company Number: US-ABBVIE-19P-163-2839157-00

PATIENT
  Age: 41 Year
  Sex: Female

DRUGS (1)
  1. ORILISSA [Suspect]
     Active Substance: ELAGOLIX SODIUM
     Indication: PRODUCT USED FOR UNKNOWN INDICATION
     Route: 048
     Dates: end: 201906

REACTIONS (5)
  - Abdominal distension [Unknown]
  - Gastric disorder [Unknown]
  - Hepatomegaly [Unknown]
  - Nausea [Unknown]
  - Vomiting [Unknown]
